FAERS Safety Report 10334344 (Version 2)
Quarter: 2014Q3

REPORT INFORMATION
  Report Type: Spontaneous
  Country: US (occurrence: US)
  Receive Date: 20140723
  Receipt Date: 20140723
  Transmission Date: 20150326
  Serious: No
  Sender: FDA-Public Use
  Company Number: US-UNITED THERAPEUTICS-UTC-046012

PATIENT
  Sex: Female
  Weight: 63.5 kg

DRUGS (2)
  1. ADCIRCA [Concomitant]
     Active Substance: TADALAFIL
  2. REMODULIN [Suspect]
     Active Substance: TREPROSTINIL
     Dosage: 0.046 UG/KG/MIN
     Route: 058
     Dates: start: 20101229

REACTIONS (3)
  - Infusion site pain [Unknown]
  - Infusion site vesicles [Unknown]
  - Peripheral swelling [Unknown]
